FAERS Safety Report 23340444 (Version 1)
Quarter: 2023Q4

REPORT INFORMATION
  Report Type: Spontaneous
  Country: JP (occurrence: JP)
  Receive Date: 20231227
  Receipt Date: 20231227
  Transmission Date: 20240109
  Serious: Yes (Other)
  Sender: FDA-Public Use
  Company Number: JP-GENMAB-2023-02281

PATIENT
  Age: 78 Year

DRUGS (11)
  1. EPKINLY [Suspect]
     Active Substance: EPCORITAMAB-BYSP
     Indication: Product used for unknown indication
     Dosage: UNK, CYCLE 1
     Dates: start: 20231127
  2. EPKINLY [Suspect]
     Active Substance: EPCORITAMAB-BYSP
     Dosage: UNK, CYCLE 1-2
     Dates: start: 20231204
  3. EPKINLY [Suspect]
     Active Substance: EPCORITAMAB-BYSP
     Dosage: UNK, CYCLE 1-3
     Dates: start: 20231211
  4. EPKINLY [Suspect]
     Active Substance: EPCORITAMAB-BYSP
     Dosage: UNK, CYCLE 1-4
     Dates: start: 20231218
  5. EPKINLY [Suspect]
     Active Substance: EPCORITAMAB-BYSP
     Dosage: UNK, CYCLE 2-5
     Dates: start: 20231225
  6. Pola-CHP-R [Concomitant]
     Dosage: UNK
  7. Pola-CHP-R [Concomitant]
     Dosage: UNK
  8. Pola-CHP-R [Concomitant]
     Dosage: UNK
  9. Pola-CHP-R [Concomitant]
     Dosage: UNK
  10. Pola-CHP-R [Concomitant]
     Dosage: UNK
  11. CORTICOTROPIN [Concomitant]
     Active Substance: CORTICOTROPIN
     Dosage: UNK

REACTIONS (7)
  - Hypogammaglobulinaemia [Not Recovered/Not Resolved]
  - Cytokine release syndrome [Recovered/Resolved]
  - Platelet count decreased [Not Recovered/Not Resolved]
  - Malaise [Recovered/Resolved]
  - Full blood count decreased [Not Recovered/Not Resolved]
  - Blood glucose increased [Not Recovered/Not Resolved]
  - Neutrophil count decreased [Not Recovered/Not Resolved]

NARRATIVE: CASE EVENT DATE: 20231128
